FAERS Safety Report 11307801 (Version 15)
Quarter: 2018Q1

REPORT INFORMATION
  Report Type: Report from Study
  Country: DE (occurrence: DE)
  Receive Date: 20150724
  Receipt Date: 20180321
  Transmission Date: 20180508
  Serious: Yes (Death, Other)
  Sender: FDA-Public Use
  Company Number: DE-ROCHE-1495718

PATIENT

DRUGS (7)
  1. HIV PROTEINASE INHIBITOR [Concomitant]
     Route: 065
  2. EFAVIRENZ. [Concomitant]
     Active Substance: EFAVIRENZ
     Route: 065
  3. DACLATASVIR. [Suspect]
     Active Substance: DACLATASVIR
     Indication: CHRONIC HEPATITIS C
     Route: 048
  4. SOFOSBUVIR [Suspect]
     Active Substance: SOFOSBUVIR
     Indication: CHRONIC HEPATITIS C
     Route: 048
  5. NEVIRAPINE. [Concomitant]
     Active Substance: NEVIRAPINE
     Route: 065
  6. RIBAVIRIN. [Suspect]
     Active Substance: RIBAVIRIN
     Indication: CHRONIC HEPATITIS C
     Route: 048
  7. RITONAVIR. [Concomitant]
     Active Substance: RITONAVIR
     Route: 065

REACTIONS (47)
  - Peritonitis bacterial [Unknown]
  - Anaemia [Unknown]
  - Diarrhoea [Unknown]
  - Haemorrhoidal haemorrhage [Unknown]
  - Pancreatitis acute [Unknown]
  - Dyspnoea [Unknown]
  - Fatigue [Unknown]
  - Neoplasm [Unknown]
  - General physical health deterioration [Unknown]
  - Fluid overload [Unknown]
  - Liver disorder [Unknown]
  - Calculus urinary [Unknown]
  - Gastrointestinal infection [Unknown]
  - Circulatory collapse [Unknown]
  - Lymphoedema [Unknown]
  - Myocardial infarction [Fatal]
  - Drug withdrawal syndrome [Unknown]
  - Sleep disorder [Unknown]
  - Headache [Unknown]
  - Infection [Unknown]
  - Clostridium difficile colitis [Unknown]
  - Erysipelas [Unknown]
  - Dermatitis allergic [Unknown]
  - Vertigo [Unknown]
  - Portal vein thrombosis [Unknown]
  - Lactic acidosis [Unknown]
  - Anal cancer [Unknown]
  - Blood creatinine increased [Unknown]
  - Acute kidney injury [Unknown]
  - Somnolence [Unknown]
  - Neutropenia [Unknown]
  - Hyponatraemia [Unknown]
  - Nausea [Unknown]
  - Gastrointestinal disorder [Unknown]
  - Hepatobiliary disease [Unknown]
  - Mental disorder [Unknown]
  - Hepatic failure [Unknown]
  - Dehydration [Unknown]
  - Streptococcal sepsis [Unknown]
  - Hypertension [Unknown]
  - Hepatic encephalopathy [Unknown]
  - Hepatocellular carcinoma [Unknown]
  - Hypersensitivity vasculitis [Unknown]
  - Abdominal pain [Unknown]
  - Pancytopenia [Unknown]
  - Soft tissue infection [Unknown]
  - Arthralgia [Unknown]
